FAERS Safety Report 8356690-4 (Version None)
Quarter: 2012Q2

REPORT INFORMATION
  Report Type: 
  Country: None (occurrence: None)
  Receive Date: 20120514
  Receipt Date: 20120510
  Transmission Date: 20120825
  Serious: Yes (Other)
  Sender: FDA-Public Use
  Company Number: PHHY2012TW040173

PATIENT
  Sex: Female

DRUGS (2)
  1. ZOLEDRONOC ACID [Suspect]
     Indication: OSTEOPOROSIS
     Dosage: 5MG/ 100ML, UNK
     Route: 042
     Dates: start: 20120503
  2. ANALGESICS [Concomitant]
     Route: 048
     Dates: start: 20120503, end: 20120506

REACTIONS (2)
  - RASH [None]
  - ORAL MUCOSA EROSION [None]
